FAERS Safety Report 19860373 (Version 2)
Quarter: 2021Q4

REPORT INFORMATION
  Report Type: Report from Study
  Country: DE (occurrence: DE)
  Receive Date: 20210921
  Receipt Date: 20211013
  Transmission Date: 20220303
  Serious: Yes (Hospitalization, Other)
  Sender: FDA-Public Use
  Company Number: DE-002147023-NVSC2020DE336329

PATIENT
  Sex: Female
  Weight: 55 kg

DRUGS (17)
  1. FENTANYL [Suspect]
     Active Substance: FENTANYL
     Indication: Back pain
     Dosage: UNK
     Route: 065
     Dates: start: 20160606, end: 201606
  2. HYDROCHLOROTHIAZIDE [Suspect]
     Active Substance: HYDROCHLOROTHIAZIDE
     Indication: Hypertension
     Dosage: UNK
     Route: 065
     Dates: end: 20160616
  3. HYDROCHLOROTHIAZIDE [Suspect]
     Active Substance: HYDROCHLOROTHIAZIDE
     Dosage: 25 MILLIGRAM, QD (25 MG, QD)
     Route: 048
     Dates: end: 201606
  4. LUCENTIS [Suspect]
     Active Substance: RANIBIZUMAB
     Indication: Neovascular age-related macular degeneration
     Dosage: 0.5 MG (PER APPLICATION)
     Route: 031
     Dates: start: 201502, end: 201604
  5. LUCENTIS [Suspect]
     Active Substance: RANIBIZUMAB
     Dosage: 0.5 MG (PER APPLICATION)
     Route: 031
     Dates: start: 20170710
  6. LUCENTIS [Suspect]
     Active Substance: RANIBIZUMAB
     Dosage: 0.5 MG (1X PER APPLICATION)
     Route: 031
     Dates: start: 20160407
  7. LUCENTIS [Suspect]
     Active Substance: RANIBIZUMAB
     Dosage: 0.5 MG (1X PER APPLICATION)
     Route: 031
     Dates: start: 20160815
  8. LUCENTIS [Suspect]
     Active Substance: RANIBIZUMAB
     Dosage: 0.5 MG (PER APPLICATION)
     Route: 031
     Dates: start: 20170904
  9. LUCENTIS [Suspect]
     Active Substance: RANIBIZUMAB
     Dosage: 0.5 MG (PER APPLICATION)
     Route: 031
     Dates: start: 20171219
  10. LUCENTIS [Suspect]
     Active Substance: RANIBIZUMAB
     Dosage: 0.5 MG (1X PER APPLICATION)
     Route: 031
     Dates: start: 20160714
  11. LUCENTIS [Suspect]
     Active Substance: RANIBIZUMAB
     Dosage: 0.5 MG (PER APPLICATION)
     Route: 031
     Dates: start: 20161219
  12. LUCENTIS [Suspect]
     Active Substance: RANIBIZUMAB
     Dosage: 0.5 MG (PER APPLICATION)
     Route: 031
     Dates: start: 20171024
  13. LUCENTIS [Suspect]
     Active Substance: RANIBIZUMAB
     Dosage: 0.5 MG (1X PER APPLICATION)
     Route: 031
     Dates: start: 20160512
  14. LUCENTIS [Suspect]
     Active Substance: RANIBIZUMAB
     Dosage: 0.5 MG (PER APPLICATION)
     Route: 031
     Dates: start: 20170807
  15. LUCENTIS [Suspect]
     Active Substance: RANIBIZUMAB
     Dosage: 0.5 MG (6 TIMES)
     Route: 031
     Dates: start: 20150224, end: 201604
  16. LUCENTIS [Suspect]
     Active Substance: RANIBIZUMAB
     Dosage: 0.5 MG (PER APPLICATION)
     Route: 031
     Dates: start: 20180215
  17. LUCENTIS [Suspect]
     Active Substance: RANIBIZUMAB
     Dosage: 0.5 MG (PER APPLICATION)
     Route: 031
     Dates: start: 20161010

REACTIONS (4)
  - Pelvic fracture [Recovered/Resolved with Sequelae]
  - Urinary tract infection [Recovered/Resolved]
  - Hyponatraemia [Recovered/Resolved]
  - Upper limb fracture [Unknown]

NARRATIVE: CASE EVENT DATE: 20160607
